FAERS Safety Report 4488188-8 (Version None)
Quarter: 2004Q4

REPORT INFORMATION
  Report Type: 
  Country: None (occurrence: None)
  Receive Date: 20041025
  Receipt Date: 20041011
  Transmission Date: 20050328
  Serious: Yes (Death, Life-Threatening, Other)
  Sender: FDA-Public Use
  Company Number: 2004076302

PATIENT
  Age: 37 Year
  Sex: Female

DRUGS (3)
  1. PIROXICAM [Suspect]
     Indication: ARTHRALGIA
     Dosage: 2 ML (1 ML, 2 IN 1 D), INTRAMUSCULAR
     Route: 030
     Dates: start: 19960501
  2. GALENIC/IBUPROFEN/PARACETAMOL/ IBUPROFEN, PARACETAMOL) [Concomitant]
  3. ALL OTHER THERAPEUTIC PRODUCTS (ALL OTHER THERAPEUTIC PRODUCTS) [Concomitant]

REACTIONS (1)
  - SEPSIS [None]
